FAERS Safety Report 5671886-8 (Version None)
Quarter: 2008Q1

REPORT INFORMATION
  Report Type: 
  Country: None (occurrence: None)
  Receive Date: 20080317
  Receipt Date: 20080317
  Transmission Date: 20080703
  Serious: Yes (Other)
  Sender: FDA-Public Use
  Company Number: None

PATIENT
  Age: 72 Year
  Sex: Female
  Weight: 81.6475 kg

DRUGS (4)
  1. LYRICA [Suspect]
     Indication: DIABETIC NEUROPATHY
     Dosage: 25 MG - 50 MG-75 MG SEE PREVIOUS PO
     Route: 048
     Dates: start: 20070606, end: 20070609
  2. AGGRENOX [Concomitant]
  3. TRICOR [Concomitant]
  4. TOPROL-XL [Concomitant]

REACTIONS (3)
  - CONDITION AGGRAVATED [None]
  - DIABETIC NEUROPATHY [None]
  - FIBROMYALGIA [None]
